FAERS Safety Report 18423948 (Version 2)
Quarter: 2020Q4

REPORT INFORMATION
  Report Type: Spontaneous
  Country: US (occurrence: US)
  Receive Date: 20201025
  Receipt Date: 20201111
  Transmission Date: 20210114
  Serious: No
  Sender: FDA-Public Use
  Company Number: US-ASTRAZENECA-2020SF36011

PATIENT
  Age: 560 Month
  Sex: Female
  Weight: 74.4 kg

DRUGS (1)
  1. BYDUREON BCISE [Suspect]
     Active Substance: EXENATIDE
     Indication: GLYCOSYLATED HAEMOGLOBIN INCREASED
     Dosage: ONCE A WEEK
     Route: 058

REACTIONS (11)
  - Injection site extravasation [Unknown]
  - Incorrect dose administered by device [Unknown]
  - Intentional device misuse [Unknown]
  - Injection site bruising [Not Recovered/Not Resolved]
  - Sensitive skin [Unknown]
  - Injection site haemorrhage [Unknown]
  - Injection site induration [Unknown]
  - Injection site mass [Recovered/Resolved]
  - Device leakage [Unknown]
  - Device use error [Unknown]
  - Injection site pain [Unknown]

NARRATIVE: CASE EVENT DATE: 202009
